FAERS Safety Report 9705216 (Version 1)
Quarter: 2013Q4

REPORT INFORMATION
  Report Type: Report from Study
  Country: AR (occurrence: AR)
  Receive Date: 20131122
  Receipt Date: 20131122
  Transmission Date: 20140711
  Serious: Yes (Hospitalization, Other)
  Sender: FDA-Public Use
  Company Number: AR-BRISTOL-MYERS SQUIBB COMPANY-19812163

PATIENT
  Age: 60 Year
  Sex: Male

DRUGS (4)
  1. ABATACEPT [Suspect]
     Dosage: INTERRUPTED:23SEP13
     Route: 042
     Dates: start: 20090824
  2. AMLODIPINE [Concomitant]
     Dosage: 1DF: 10 UNITS NOS
     Route: 048
  3. ATENOLOL [Concomitant]
     Route: 048
  4. ACETYLSALICYLIC ACID [Concomitant]
     Route: 048

REACTIONS (4)
  - Pneumonia [Recovering/Resolving]
  - Urinary tract infection [Recovering/Resolving]
  - Intervertebral discitis [Recovering/Resolving]
  - Disorientation [Recovering/Resolving]
